FAERS Safety Report 25816224 (Version 2)
Quarter: 2025Q4

REPORT INFORMATION
  Report Type: Spontaneous
  Country: IN (occurrence: IN)
  Receive Date: 20250918
  Receipt Date: 20251013
  Transmission Date: 20260118
  Serious: Yes (Other)
  Sender: LUPIN
  Company Number: IN-LUPIN LIMITED-2025-08288

PATIENT

DRUGS (1)
  1. ETHAMBUTOL HYDROCHLORIDE [Suspect]
     Active Substance: ETHAMBUTOL HYDROCHLORIDE
     Indication: Tuberculosis
     Dosage: UNK, QD IN THE MORNING AFTER BREAKFAST
     Route: 065

REACTIONS (1)
  - Hepatic infection [Unknown]
